FAERS Safety Report 17177700 (Version 2)
Quarter: 2020Q1

REPORT INFORMATION
  Report Type: Report from Study
  Country: US (occurrence: US)
  Receive Date: 20191219
  Receipt Date: 20200310
  Transmission Date: 20200409
  Serious: Yes (Other)
  Sender: FDA-Public Use
  Company Number: US-ACTELION-A-NJ2019-196543

PATIENT
  Sex: Male
  Weight: 68.03 kg

DRUGS (2)
  1. OPSUMIT [Suspect]
     Active Substance: MACITENTAN
     Indication: PULMONARY ARTERIAL HYPERTENSION
     Dosage: 10 MG, QD
     Route: 048
  2. TADALAFIL. [Concomitant]
     Active Substance: TADALAFIL

REACTIONS (8)
  - Nausea [Unknown]
  - Dyspnoea [Recovering/Resolving]
  - Mental status changes [Unknown]
  - Peripheral swelling [Not Recovered/Not Resolved]
  - Fluid retention [Recovered/Resolved]
  - Nasal congestion [Unknown]
  - Musculoskeletal discomfort [Unknown]
  - Deafness [Unknown]
